FAERS Safety Report 9661556 (Version 2)
Quarter: 2013Q4

REPORT INFORMATION
  Report Type: Spontaneous
  Country: US (occurrence: US)
  Receive Date: 20131031
  Receipt Date: 20131031
  Transmission Date: 20140711
  Serious: No
  Sender: FDA-Public Use
  Company Number: US-PURDUE-USA-2010-0053783

PATIENT
  Sex: Male
  Weight: 95.24 kg

DRUGS (2)
  1. OXYCONTIN (NDA 22-272) [Suspect]
     Indication: PAIN
     Dosage: 80 MG, 6/DAY
  2. TYLOX                              /00446701/ [Concomitant]
     Indication: BREAKTHROUGH PAIN
     Dosage: 5/500 UNK, PRN

REACTIONS (4)
  - Drug withdrawal syndrome [Unknown]
  - Therapeutic response delayed [Unknown]
  - Drug ineffective [Unknown]
  - Drug effect decreased [Unknown]
